FAERS Safety Report 14689566 (Version 3)
Quarter: 2018Q2

REPORT INFORMATION
  Report Type: Report from Study
  Country: IT (occurrence: IT)
  Receive Date: 20180328
  Receipt Date: 20180522
  Transmission Date: 20180711
  Serious: Yes (Hospitalization)
  Sender: FDA-Public Use
  Company Number: IT-PFIZER INC-2018124961

PATIENT
  Age: 50 Year
  Sex: Male

DRUGS (3)
  1. CLOTIAPINE [Suspect]
     Active Substance: CLOTHIAPINE
     Dosage: 100 MG, SINGLE
     Route: 048
     Dates: start: 20180104, end: 20180104
  2. TAVOR (LORAZEPAM) [Suspect]
     Active Substance: LORAZEPAM
     Dosage: UNK
     Route: 048
     Dates: start: 20180104, end: 20180104
  3. QUETIAPINA AUROBINDO [Suspect]
     Active Substance: QUETIAPINE FUMARATE
     Dosage: 400 MG, SINGLE
     Route: 048
     Dates: start: 20180104, end: 20180104

REACTIONS (2)
  - Medication error [Recovered/Resolved]
  - Sopor [Recovered/Resolved]

NARRATIVE: CASE EVENT DATE: 20180104
